FAERS Safety Report 9659639 (Version 2)
Quarter: 2014Q2

REPORT INFORMATION
  Report Type: Spontaneous
  Country: US (occurrence: None)
  Receive Date: 20131029
  Receipt Date: 20140415
  Transmission Date: 20141212
  Serious: Yes (Other)
  Sender: FDA-Public Use
  Company Number: AUR-APL-2013-08859

PATIENT
  Age: 31 Year
  Sex: Male

DRUGS (4)
  1. RISPERIDONE [Suspect]
     Indication: PRODUCT USED FOR UNKNOWN INDICATION
     Dosage: UNKNOWN
  2. CLOMIPRAMINE [Suspect]
     Indication: OBSESSIVE-COMPULSIVE DISORDER
     Dosage: TITRATED UP TO 100MG DAILY, UNKNOWN
  3. CHLORPROMAZINE [Suspect]
     Indication: PRODUCT USED FOR UNKNOWN INDICATION
  4. QUETIAPINE (QUETIAPINE) [Concomitant]

REACTIONS (6)
  - Pleurothotonus [None]
  - Sexual dysfunction [None]
  - Drug interaction [None]
  - Drug interaction [None]
  - Drug level increased [None]
  - Obsessive-compulsive disorder [None]
